FAERS Safety Report 7439835-X (Version None)
Quarter: 2011Q2

REPORT INFORMATION
  Report Type: 
  Country: None (occurrence: None)
  Receive Date: 20110427
  Receipt Date: 20110406
  Transmission Date: 20111010
  Serious: No
  Sender: FDA-Public Use
  Company Number: US-B.I. PHARMACEUTICALS,INC./RIDGEFIELD-2011-BP-10189BP

PATIENT
  Sex: Female

DRUGS (5)
  1. LOVASTATIN [Concomitant]
     Indication: BLOOD CHOLESTEROL INCREASED
  2. LOSARTAN POTASSIUM [Concomitant]
     Indication: HYPERTENSION
  3. SPIRIVA [Suspect]
     Indication: CHRONIC OBSTRUCTIVE PULMONARY DISEASE
     Dosage: 18 MCG
     Route: 055
     Dates: start: 20110201
  4. OMEPRAZOLE [Concomitant]
     Indication: GASTROOESOPHAGEAL REFLUX DISEASE
  5. GABAPENTIN [Concomitant]
     Indication: SPINAL COLUMN STENOSIS

REACTIONS (2)
  - CHEST DISCOMFORT [None]
  - RESPIRATORY TRACT INFECTION [None]
